FAERS Safety Report 16180305 (Version 2)
Quarter: 2019Q2

REPORT INFORMATION
  Report Type: Spontaneous
  Country: US (occurrence: US)
  Receive Date: 20190410
  Receipt Date: 20190410
  Transmission Date: 20190711
  Serious: Yes (Other)
  Sender: FDA-Public Use
  Company Number: US-AMGEN-USASP2019053833

PATIENT
  Age: 23 Year
  Sex: Female

DRUGS (2)
  1. PARSABIV [Suspect]
     Active Substance: ETELCALCETIDE HYDROCHLORIDE
     Indication: SECONDARY HYPERTHYROIDISM
     Dosage: 5 MILLIGRAM, 3 TIMES/WK
     Route: 065
  2. SENSIPAR [Suspect]
     Active Substance: CINACALCET HYDROCHLORIDE
     Indication: SECONDARY HYPERTHYROIDISM
     Dosage: 30 MILLIGRAM, QD
     Route: 065

REACTIONS (3)
  - Seizure [Unknown]
  - Drug intolerance [Unknown]
  - Diarrhoea [Unknown]
